FAERS Safety Report 4680595-3 (Version None)
Quarter: 2005Q2

REPORT INFORMATION
  Report Type: 
  Country: None (occurrence: None)
  Receive Date: 20050531
  Receipt Date: 20050217
  Transmission Date: 20051028
  Serious: Yes (Life-Threatening, Hospitalization)
  Sender: FDA-Public Use
  Company Number: 237966

PATIENT
  Age: 69 Year
  Sex: Female

DRUGS (19)
  1. NOVOLOG MIX 70/30 [Suspect]
     Indication: INSULIN-REQUIRING TYPE II DIABETES MELLITUS
     Dosage: 34 IU, BID, SUBCUTANEOUS
     Route: 058
     Dates: start: 20040101, end: 20040301
  2. NOVOLOG MIX 70/30 [Suspect]
     Indication: INSULIN-REQUIRING TYPE II DIABETES MELLITUS
     Dosage: 34 IU, BID, SUBCUTANEOUS
     Route: 058
     Dates: start: 20040401
  3. PLAVIX [Concomitant]
  4. COREG [Concomitant]
  5. ACETYLSALICYLIC ACID SRT [Concomitant]
  6. DIOVAN ^CIBA-GEIGY^ (VALSARTAN) [Concomitant]
  7. ISOSORBIDE (ISOSORBIDE) [Concomitant]
  8. FUROSEMIDE [Concomitant]
  9. FOLIC ACID [Concomitant]
  10. TRILEPTAL [Concomitant]
  11. AMBIEN [Concomitant]
  12. LIPITOR [Concomitant]
  13. AMITRIPTYLINE HCL [Concomitant]
  14. HUMULIN N [Concomitant]
  15. LASIX [Concomitant]
  16. SYNTHROID (LEVOTHYROXINE SODIUM) POWDER FOR INJECTION, 4 MG [Concomitant]
  17. MULTI VITAMINS VITAFIT (CALCIUM PANTOTHENATE, FOLIC ACID, VITAMINS NOS [Concomitant]
  18. IMDUR [Concomitant]
  19. TYLENOL [Concomitant]

REACTIONS (1)
  - HYPOGLYCAEMIC COMA [None]
